FAERS Safety Report 6582289-6 (Version None)
Quarter: 2010Q1

REPORT INFORMATION
  Report Type: 
  Country: None (occurrence: None)
  Receive Date: 20100212
  Receipt Date: 20100212
  Transmission Date: 20100710
  Serious: Yes (Death, Hospitalization)
  Sender: FDA-Public Use
  Company Number: None

PATIENT
  Sex: Female
  Weight: 65 kg

DRUGS (2)
  1. CARBOPLATIN [Suspect]
     Dosage: 480 MG
     Dates: end: 20080220
  2. TAXOL [Suspect]
     Dosage: 300 MG
     Dates: end: 20080220

REACTIONS (4)
  - CEREBROVASCULAR ACCIDENT [None]
  - COMMUNICATION DISORDER [None]
  - INCORRECT ROUTE OF DRUG ADMINISTRATION [None]
  - VISUAL IMPAIRMENT [None]
